FAERS Safety Report 5860656-3 (Version None)
Quarter: 2008Q3

REPORT INFORMATION
  Report Type: 
  Country: None (occurrence: None)
  Receive Date: 20080827
  Receipt Date: 20071018
  Transmission Date: 20090109
  Serious: No
  Sender: FDA-Public Use
  Company Number: US-ABBOTT-07P-163-0421038-00

PATIENT
  Sex: Male
  Weight: 108.9 kg

DRUGS (9)
  1. NIASPAN [Suspect]
     Indication: BLOOD CHOLESTEROL ABNORMAL
     Route: 048
     Dates: start: 20070901
  2. NIASPAN [Suspect]
     Route: 048
     Dates: start: 20070801, end: 20070901
  3. TADALAFIL [Suspect]
     Indication: DRUG USE FOR UNKNOWN INDICATION
     Route: 048
  4. MAXZIDE [Concomitant]
     Indication: DRUG USE FOR UNKNOWN INDICATION
  5. IBUPROFEN [Concomitant]
     Indication: DRUG USE FOR UNKNOWN INDICATION
     Route: 048
  6. RABEPRAZOLE SODIUM [Concomitant]
     Indication: HIATUS HERNIA
     Route: 048
  7. FLUVASTATIN [Concomitant]
     Indication: DRUG USE FOR UNKNOWN INDICATION
  8. PROSTATE PILL [Concomitant]
     Indication: PROPHYLAXIS
     Route: 048
  9. PROSTATE PILL [Concomitant]
     Indication: PROSTATIC DISORDER

REACTIONS (1)
  - FLUSHING [None]
